FAERS Safety Report 23292225 (Version 2)
Quarter: 2023Q4

REPORT INFORMATION
  Report Type: Spontaneous
  Country: CA (occurrence: CA)
  Receive Date: 20231213
  Receipt Date: 20231226
  Transmission Date: 20240110
  Serious: Yes (Other)
  Sender: FDA-Public Use
  Company Number: CA-BEH-2023166356

PATIENT
  Age: 31 Year
  Sex: Female

DRUGS (1)
  1. PRIVIGEN [Suspect]
     Active Substance: HUMAN IMMUNOGLOBULIN G
     Indication: Myasthenia gravis
     Dosage: UNK
     Route: 042

REACTIONS (3)
  - Anaphylactic reaction [Unknown]
  - Urticaria [Unknown]
  - Chest discomfort [Unknown]
